FAERS Safety Report 21828570 (Version 1)
Quarter: 2023Q1

REPORT INFORMATION
  Report Type: Report from Study
  Country: US (occurrence: US)
  Receive Date: 20230106
  Receipt Date: 20230106
  Transmission Date: 20230417
  Serious: No
  Sender: FDA-Public Use
  Company Number: US-ABBVIE-22K-163-4520395-00

PATIENT
  Sex: Male

DRUGS (2)
  1. IMBRUVICA [Suspect]
     Active Substance: IBRUTINIB
     Indication: Chronic lymphocytic leukaemia
     Route: 048
     Dates: start: 202111
  2. IMBRUVICA [Suspect]
     Active Substance: IBRUTINIB
     Indication: Chronic lymphocytic leukaemia
     Route: 048
     Dates: start: 202111, end: 202111

REACTIONS (8)
  - Joint swelling [Unknown]
  - Emotional disorder [Unknown]
  - Impaired healing [Unknown]
  - Intentional product misuse [Unknown]
  - Arthropathy [Unknown]
  - Diarrhoea [Unknown]
  - Contusion [Unknown]
  - Anger [Unknown]
